FAERS Safety Report 19177542 (Version 3)
Quarter: 2021Q2

REPORT INFORMATION
  Report Type: Spontaneous
  Country: US (occurrence: US)
  Receive Date: 20210425
  Receipt Date: 20210511
  Transmission Date: 20210717
  Serious: Yes (Hospitalization)
  Sender: FDA-Public Use
  Company Number: US-JNJFOC-20210433327

PATIENT
  Age: 25 Year
  Sex: Female

DRUGS (2)
  1. PARACETAMOL [Suspect]
     Active Substance: ACETAMINOPHEN
     Indication: TOOTHACHE
     Dosage: 3,0004,000 MG OF ACETAMINOPHEN DAILY
     Route: 065
  2. HYDROCODONE;PARACETAMOL [Suspect]
     Active Substance: ACETAMINOPHEN\HYDROCODONE
     Indication: PAIN
     Route: 065

REACTIONS (11)
  - Pyroglutamate increased [Recovered/Resolved]
  - Sepsis [Unknown]
  - Premature labour [Unknown]
  - Toxicity to various agents [Recovered/Resolved]
  - Haemoglobin decreased [Recovering/Resolving]
  - Aspartate aminotransferase increased [Recovering/Resolving]
  - Metabolic acidosis [Recovered/Resolved]
  - Product administration error [Unknown]
  - Abdominal pain [Recovered/Resolved]
  - Exposure during pregnancy [Unknown]
  - Alanine aminotransferase increased [Recovering/Resolving]
